FAERS Safety Report 20821507 (Version 5)
Quarter: 2023Q1

REPORT INFORMATION
  Report Type: Spontaneous
  Country: US (occurrence: US)
  Receive Date: 20220512
  Receipt Date: 20230120
  Transmission Date: 20230418
  Serious: Yes (Other)
  Sender: FDA-Public Use
  Company Number: US-PFIZER INC-202200176909

PATIENT
  Age: 58 Year
  Sex: Female

DRUGS (2)
  1. XELJANZ XR [Suspect]
     Active Substance: TOFACITINIB CITRATE
     Dosage: 11 MG
     Dates: start: 20211101
  2. XELJANZ XR [Suspect]
     Active Substance: TOFACITINIB CITRATE
     Dosage: 11 MG
     Dates: start: 20220110

REACTIONS (11)
  - Nephrolithiasis [Unknown]
  - Product dose omission issue [Unknown]
  - Blood cholesterol increased [Unknown]
  - Pain [Not Recovered/Not Resolved]
  - Musculoskeletal stiffness [Unknown]
  - Contusion [Unknown]
  - Varicose vein [Unknown]
  - Pain in extremity [Unknown]
  - Weight increased [Unknown]
  - Memory impairment [Unknown]
  - Bladder spasm [Unknown]

NARRATIVE: CASE EVENT DATE: 20220101
